FAERS Safety Report 9214737 (Version 2)
Quarter: 2013Q2

REPORT INFORMATION
  Report Type: Spontaneous
  Country: US (occurrence: US)
  Receive Date: 20130405
  Receipt Date: 20130607
  Transmission Date: 20140414
  Serious: Yes (Other)
  Sender: FDA-Public Use
  Company Number: US-BAYER-2013-042602

PATIENT
  Sex: Male

DRUGS (1)
  1. STIVARGA [Suspect]
     Dosage: 2 TABLETS A DAY FOR 21 DAYS
     Dates: start: 20121207

REACTIONS (3)
  - Blood pressure increased [None]
  - Faecal incontinence [None]
  - Colon cancer metastatic [None]
